FAERS Safety Report 16143871 (Version 2)
Quarter: 2019Q2

REPORT INFORMATION
  Report Type: Spontaneous
  Country: CA (occurrence: CA)
  Receive Date: 20190401
  Receipt Date: 20190416
  Transmission Date: 20190711
  Serious: Yes (Other)
  Sender: FDA-Public Use
  Company Number: CA-PFIZER INC-2017407153

PATIENT
  Age: 16 Year
  Sex: Male
  Weight: 46 kg

DRUGS (6)
  1. VYVANSE [Concomitant]
     Active Substance: LISDEXAMFETAMINE DIMESYLATE
     Dosage: 10 MG PRN (AS NEEDED)
     Route: 048
     Dates: end: 2018
  2. GENOTROPIN GOQUICK [Suspect]
     Active Substance: SOMATROPIN
     Dosage: 2.25 MG, 6 DAYS A WEEK
     Route: 058
     Dates: start: 2018
  3. VYVANSE [Concomitant]
     Active Substance: LISDEXAMFETAMINE DIMESYLATE
     Dosage: 20 MG, AS NEEDED
     Route: 048
     Dates: start: 2018
  4. GENOTROPIN GOQUICK [Suspect]
     Active Substance: SOMATROPIN
     Indication: GROWTH RETARDATION
     Dosage: 2.0 MG, DAILY (6 DAYS PER WEEK)
     Route: 058
     Dates: start: 201801
  5. GENOTROPIN GOQUICK [Suspect]
     Active Substance: SOMATROPIN
     Dosage: 2.1 MG, DAILY (6 DAYS A WEEK)
     Route: 058
     Dates: start: 20180129, end: 2018
  6. PROZAC [Concomitant]
     Active Substance: FLUOXETINE HYDROCHLORIDE
     Indication: ANXIETY
     Dosage: 20 MG, UNK
     Route: 048

REACTIONS (7)
  - Injection site bruising [Recovered/Resolved]
  - Hypothalamo-pituitary disorder [Unknown]
  - Product dose omission [Unknown]
  - Decreased appetite [Unknown]
  - Insulin-like growth factor increased [Unknown]
  - Hunger [Not Recovered/Not Resolved]
  - Product prescribing error [Unknown]

NARRATIVE: CASE EVENT DATE: 20180917
